FAERS Safety Report 16048439 (Version 4)
Quarter: 2019Q3

REPORT INFORMATION
  Report Type: Report from Study
  Country: JP (occurrence: JP)
  Receive Date: 20190307
  Receipt Date: 20190801
  Transmission Date: 20191004
  Serious: Yes (Hospitalization, Other)
  Sender: FDA-Public Use
  Company Number: JP-TAKEDA-2019TUS012145

PATIENT
  Age: 75 Year
  Sex: Male
  Weight: 60 kg

DRUGS (36)
  1. PONATINIB [Suspect]
     Active Substance: PONATINIB
     Dosage: 30 MILLIGRAM, QD
     Route: 048
     Dates: start: 20180404, end: 20180417
  2. LYRICA [Suspect]
     Active Substance: PREGABALIN
     Indication: SOMATIC SYMPTOM DISORDER
  3. METHOTREXATE. [Concomitant]
     Active Substance: METHOTREXATE
     Dosage: UNK
     Route: 024
     Dates: start: 20180621
  4. PONATINIB [Suspect]
     Active Substance: PONATINIB
     Indication: CHRONIC MYELOID LEUKAEMIA
     Dosage: 45 MILLIGRAM, QD
     Route: 048
     Dates: start: 20180126, end: 20180314
  5. CYTARABINE. [Concomitant]
     Active Substance: CYTARABINE
     Dosage: UNK
     Route: 024
     Dates: start: 20180607
  6. PREDNISOLONE. [Concomitant]
     Active Substance: PREDNISOLONE
     Dosage: UNK
     Route: 024
     Dates: start: 20180705
  7. LUNESTA [Concomitant]
     Active Substance: ESZOPICLONE
     Indication: SOMATIC SYMPTOM DISORDER
     Dosage: UNK
     Route: 065
  8. CELECOX [Concomitant]
     Active Substance: CELECOXIB
     Indication: SOMATIC SYMPTOM DISORDER
     Dosage: UNK
     Route: 065
  9. PONATINIB [Suspect]
     Active Substance: PONATINIB
     Dosage: 15 MILLIGRAM, QD
     Route: 048
     Dates: start: 20180320, end: 20180403
  10. CYTARABINE. [Concomitant]
     Active Substance: CYTARABINE
     Dosage: UNK
     Route: 024
     Dates: start: 20180621
  11. PREDNISOLONE. [Concomitant]
     Active Substance: PREDNISOLONE
     Dosage: UNK
     Route: 024
     Dates: start: 20180509
  12. PREDNISOLONE. [Concomitant]
     Active Substance: PREDNISOLONE
     Dosage: UNK
     Route: 024
     Dates: start: 20180802, end: 20180802
  13. TEGRETOL [Suspect]
     Active Substance: CARBAMAZEPINE
     Indication: HEADACHE
     Dosage: UNK
     Route: 065
  14. LYRICA [Suspect]
     Active Substance: PREGABALIN
     Indication: HEADACHE
     Dosage: UNK
     Route: 065
  15. CONTOMIN                           /00011907/ [Suspect]
     Active Substance: CHLORPROMAZINE HIBENZATE
     Indication: PRODUCT USED FOR UNKNOWN INDICATION
     Dosage: UNK
     Route: 065
  16. METHOTREXATE. [Concomitant]
     Active Substance: METHOTREXATE
     Dosage: UNK
     Route: 024
     Dates: start: 20180524
  17. METHOTREXATE. [Concomitant]
     Active Substance: METHOTREXATE
     Dosage: UNK
     Route: 024
     Dates: start: 20180607
  18. METHOTREXATE. [Concomitant]
     Active Substance: METHOTREXATE
     Dosage: UNK
     Route: 024
     Dates: start: 20180802, end: 20180802
  19. CYTARABINE. [Concomitant]
     Active Substance: CYTARABINE
     Indication: CENTRAL NERVOUS SYSTEM LEUKAEMIA
     Dosage: UNK
     Route: 024
     Dates: start: 20180502
  20. CYTARABINE. [Concomitant]
     Active Substance: CYTARABINE
     Dosage: UNK
     Route: 024
     Dates: start: 20180705
  21. PREDNISOLONE. [Concomitant]
     Active Substance: PREDNISOLONE
     Indication: CENTRAL NERVOUS SYSTEM LEUKAEMIA
     Dosage: UNK
     Route: 024
     Dates: start: 20180502
  22. QUETIAPINE                         /01270902/ [Concomitant]
     Active Substance: QUETIAPINE FUMARATE
     Indication: SOMATIC SYMPTOM DISORDER
     Dosage: UNK
     Route: 065
  23. PONATINIB [Suspect]
     Active Substance: PONATINIB
     Dosage: 45 MILLIGRAM, QD
     Route: 048
     Dates: start: 20180418
  24. METHOTREXATE. [Concomitant]
     Active Substance: METHOTREXATE
     Dosage: UNK
     Route: 024
     Dates: start: 20180509
  25. PREDNISOLONE. [Concomitant]
     Active Substance: PREDNISOLONE
     Dosage: UNK
     Route: 024
     Dates: start: 20180524
  26. PREDNISOLONE. [Concomitant]
     Active Substance: PREDNISOLONE
     Dosage: UNK
     Route: 024
     Dates: start: 20180719
  27. METHOTREXATE. [Concomitant]
     Active Substance: METHOTREXATE
     Indication: CENTRAL NERVOUS SYSTEM LEUKAEMIA
     Dosage: UNK
     Route: 024
     Dates: start: 20180502
  28. METHOTREXATE. [Concomitant]
     Active Substance: METHOTREXATE
     Dosage: UNK
     Route: 024
     Dates: start: 20180705
  29. CYTARABINE. [Concomitant]
     Active Substance: CYTARABINE
     Dosage: UNK
     Route: 024
     Dates: start: 20180524
  30. CYTARABINE. [Concomitant]
     Active Substance: CYTARABINE
     Dosage: UNK
     Route: 024
     Dates: start: 20180719
  31. LOXONIN [Concomitant]
     Active Substance: LOXOPROFEN SODIUM
     Indication: HEADACHE
     Dosage: UNK
     Route: 065
  32. METHOTREXATE. [Concomitant]
     Active Substance: METHOTREXATE
     Dosage: UNK
     Route: 024
     Dates: start: 20180719
  33. CYTARABINE. [Concomitant]
     Active Substance: CYTARABINE
     Dosage: UNK
     Route: 024
     Dates: start: 20180509
  34. CYTARABINE. [Concomitant]
     Active Substance: CYTARABINE
     Dosage: UNK
     Route: 024
     Dates: start: 20180802, end: 20180802
  35. PREDNISOLONE. [Concomitant]
     Active Substance: PREDNISOLONE
     Dosage: UNK
     Route: 024
     Dates: start: 20180607
  36. PREDNISOLONE. [Concomitant]
     Active Substance: PREDNISOLONE
     Dosage: UNK
     Route: 024
     Dates: start: 20180621

REACTIONS (8)
  - Gamma-glutamyltransferase increased [Recovered/Resolved]
  - Platelet count decreased [Recovered/Resolved]
  - Anaemia [Recovered/Resolved]
  - Platelet count decreased [Recovered/Resolved]
  - Somatic symptom disorder [Recovered/Resolved]
  - Urinary retention [Not Recovered/Not Resolved]
  - Headache [Recovered/Resolved]
  - Central nervous system leukaemia [Recovering/Resolving]

NARRATIVE: CASE EVENT DATE: 20180209
